FAERS Safety Report 9286491 (Version 2)
Quarter: 2013Q2

REPORT INFORMATION
  Report Type: Spontaneous
  Country: US (occurrence: None)
  Receive Date: 20130503
  Receipt Date: 20130516
  Transmission Date: 20140414
  Serious: Yes (Other)
  Sender: FDA-Public Use
  Company Number: AUR-APL-2013-03593

PATIENT
  Age: 37 Year
  Sex: Male

DRUGS (9)
  1. METOPROLOL [Suspect]
     Indication: BLOOD PRESSURE ABNORMAL
     Dosage: (25 MG, 2 IN 1 D)
     Route: 048
  2. LISINOPRIL (LISINOPRIL) [Suspect]
     Indication: PRODUCT USED FOR UNKNOWN INDICATION
     Dosage: (25 MG, 2 IN 1 D)
     Route: 048
  3. ATENOLOL [Suspect]
     Indication: PRODUCT USED FOR UNKNOWN INDICATION
     Dosage: (50 MG, 1 D)
     Route: 048
  4. CRESTOR (ROSUVASTATIN) [Suspect]
     Indication: LIPIDS ABNORMAL
     Route: 048
  5. ALTACE (RAMIPRIL) [Concomitant]
  6. PLAVIX (CLOPIDOGREL) [Concomitant]
  7. SIMVASTATIN [Concomitant]
  8. LORTAB (VICODIN) [Concomitant]
  9. NAPROSYN (NAPROXEN) [Concomitant]

REACTIONS (20)
  - Myocardial infarction [None]
  - Wrist fracture [None]
  - Upper limb fracture [None]
  - Choking [None]
  - Throat tightness [None]
  - Hypertension [None]
  - Fatigue [None]
  - Dry mouth [None]
  - Back pain [None]
  - Pollakiuria [None]
  - Hyperlipidaemia [None]
  - Oedema peripheral [None]
  - Dizziness [None]
  - Fall [None]
  - Nodule [None]
  - Pain [None]
  - Flank pain [None]
  - Back injury [None]
  - Arthropod bite [None]
  - Dental caries [None]
